FAERS Safety Report 18634664 (Version 1)
Quarter: 2020Q4

REPORT INFORMATION
  Report Type: Report from Study
  Country: None (occurrence: US)
  Receive Date: 20201218
  Receipt Date: 20201218
  Transmission Date: 20210114
  Serious: Yes (Other)
  Sender: FDA-Public Use
  Company Number: US-ABBVIE-20K-163-3691381-00

PATIENT
  Sex: Male

DRUGS (1)
  1. HUMIRA [Suspect]
     Active Substance: ADALIMUMAB
     Indication: PSORIATIC ARTHROPATHY
     Route: 058
     Dates: start: 2011

REACTIONS (6)
  - Inflammation [Unknown]
  - Sciatica [Recovering/Resolving]
  - Nerve block [Recovering/Resolving]
  - Psoriatic arthropathy [Not Recovered/Not Resolved]
  - Psoriasis [Unknown]
  - Nephrolithiasis [Recovered/Resolved]
